FAERS Safety Report 4783185-7 (Version None)
Quarter: 2005Q3

REPORT INFORMATION
  Report Type: 
  Country: None (occurrence: None)
  Receive Date: 20050929
  Receipt Date: 20050712
  Transmission Date: 20060218
  Serious: Yes (Hospitalization)
  Sender: FDA-Public Use
  Company Number: GB-GLAXOSMITHKLINE-B0387574A

PATIENT
  Age: 70 Year
  Sex: Female

DRUGS (2)
  1. ROSIGLITAZONE [Suspect]
     Indication: DIABETES MELLITUS NON-INSULIN-DEPENDENT
     Route: 048
     Dates: start: 20020319
  2. GLICLAZIDE [Concomitant]
     Indication: DIABETES MELLITUS NON-INSULIN-DEPENDENT
     Route: 048
     Dates: start: 20011112

REACTIONS (9)
  - DIPLOPIA [None]
  - EYE PAIN [None]
  - GAIT DISTURBANCE [None]
  - HEADACHE [None]
  - MUSCULOSKELETAL STIFFNESS [None]
  - PHOTOPHOBIA [None]
  - SHUNT OCCLUSION [None]
  - SOMNOLENCE [None]
  - VOMITING [None]
